FAERS Safety Report 21866632 (Version 1)
Quarter: 2023Q1

REPORT INFORMATION
  Report Type: Spontaneous
  Country: US (occurrence: US)
  Receive Date: 20230116
  Receipt Date: 20230116
  Transmission Date: 20230417
  Serious: No
  Sender: FDA-Public Use
  Company Number: US-INTRA-CELLULAR THERAPIES, INC.-2022ICT01394

PATIENT
  Age: 30 Year
  Sex: Male
  Weight: 94.059 kg

DRUGS (8)
  1. CAPLYTA [Suspect]
     Active Substance: LUMATEPERONE
     Indication: Schizoaffective disorder
     Dosage: 42 MG, 1X/DAY
     Route: 048
  2. XANAX [Concomitant]
     Active Substance: ALPRAZOLAM
     Dosage: 1 MG, 2X/DAY
  3. LEVOTHYROXINE [Concomitant]
     Active Substance: LEVOTHYROXINE
     Dosage: 35 ?G, 1X/DAY
  4. MESALAMINE [Concomitant]
     Active Substance: MESALAMINE
     Dosage: 1200 MG, 2X/DAY
  5. LUMIGAN [Concomitant]
     Active Substance: BIMATOPROST
     Dosage: 1 DROP, EACH EYE 1X/DAY
  6. PROTONIX [Concomitant]
     Active Substance: PANTOPRAZOLE SODIUM
     Dosage: 40 MG, 1X/DAY
  7. EMGALITY [Concomitant]
     Active Substance: GALCANEZUMAB-GNLM
     Dosage: UNK, 1X/MONTH
  8. SUMATRIPTAN [Concomitant]
     Active Substance: SUMATRIPTAN
     Dosage: 100 MG, 2X/WEEK

REACTIONS (4)
  - Skin burning sensation [Recovered/Resolved]
  - Urinary incontinence [Recovered/Resolved]
  - Sexual dysfunction [Recovered/Resolved]
  - Off label use [Recovered/Resolved]

NARRATIVE: CASE EVENT DATE: 20220801
